FAERS Safety Report 16860966 (Version 1)
Quarter: 2019Q3

REPORT INFORMATION
  Report Type: Spontaneous
  Country: HR (occurrence: HR)
  Receive Date: 20190927
  Receipt Date: 20190927
  Transmission Date: 20191005
  Serious: Yes (Hospitalization, Other)
  Sender: FDA-Public Use
  Company Number: HR-PFIZER INC-2019413843

PATIENT
  Age: 69 Year
  Sex: Female

DRUGS (5)
  1. TRANDOLAPRIL. [Suspect]
     Active Substance: TRANDOLAPRIL
     Dosage: 4 MG, 1X/DAY
  2. ACETYLSALICYLIC ACID [Suspect]
     Active Substance: ASPIRIN
     Dosage: 100 MG, 1X/DAY
  3. ATORVASTATIN CALCIUM. [Suspect]
     Active Substance: ATORVASTATIN CALCIUM
     Dosage: 10 MG, 1X/DAY
  4. METOPROLOL. [Suspect]
     Active Substance: METOPROLOL
     Dosage: 50 MG, 2X/DAY
  5. AMIODARONE [Suspect]
     Active Substance: AMIODARONE
     Dosage: 100 MG, 1X/DAY

REACTIONS (4)
  - Atrial fibrillation [Unknown]
  - Arteriosclerosis [Unknown]
  - Hypertension [Unknown]
  - Angina pectoris [Unknown]
